FAERS Safety Report 16479121 (Version 1)
Quarter: 2019Q2

REPORT INFORMATION
  Report Type: Report from Study
  Country: US (occurrence: US)
  Receive Date: 20190626
  Receipt Date: 20190626
  Transmission Date: 20190711
  Serious: No
  Sender: FDA-Public Use
  Company Number: US-SAOL THERAPEUTICS-2018SAO00970

PATIENT
  Age: 18 Year
  Sex: Female
  Weight: 55.33 kg

DRUGS (3)
  1. LIORESAL [Suspect]
     Active Substance: BACLOFEN
     Dosage: UNK
     Route: 037
     Dates: start: 201711
  2. LIORESAL [Suspect]
     Active Substance: BACLOFEN
     Dosage: 175.11 ?G, \DAY
     Route: 037
     Dates: start: 20170928, end: 20171012
  3. LIORESAL [Suspect]
     Active Substance: BACLOFEN
     Dosage: 250.03 ?G, \DAY
     Route: 037
     Dates: start: 20171012, end: 201711

REACTIONS (2)
  - Constipation [Recovered/Resolved]
  - Cough decreased [Recovered/Resolved]

NARRATIVE: CASE EVENT DATE: 20171109
